FAERS Safety Report 7967171-1 (Version None)
Quarter: 2011Q4

REPORT INFORMATION
  Report Type: 
  Country: None (occurrence: None)
  Receive Date: 20111209
  Receipt Date: 20111128
  Transmission Date: 20120403
  Serious: Yes (Hospitalization)
  Sender: FDA-Public Use
  Company Number: ES-JNJFOC-20101003029

PATIENT
  Age: 45 Year
  Sex: Male
  Weight: 85 kg

DRUGS (13)
  1. REMICADE [Suspect]
     Indication: COLITIS ULCERATIVE
     Route: 042
     Dates: end: 20100820
  2. REMICADE [Suspect]
     Route: 042
  3. METHOTREXATE [Suspect]
     Indication: COLITIS ULCERATIVE
     Route: 030
     Dates: start: 20100902, end: 20101201
  4. CALCIUM [Concomitant]
     Route: 048
     Dates: start: 20101013
  5. CALCIUM [Concomitant]
     Indication: COLITIS ULCERATIVE
     Route: 048
     Dates: start: 20100521, end: 20100730
  6. CORTICOSTEROIDS [Concomitant]
     Indication: COLITIS ULCERATIVE
     Dosage: DOSE= ^1% MG PER DAY^
     Route: 054
     Dates: start: 20101103
  7. PREDNISONE [Suspect]
     Indication: COLITIS ULCERATIVE
     Route: 048
     Dates: start: 20100521
  8. REMICADE [Suspect]
     Route: 042
     Dates: start: 20100518
  9. PREDNISONE [Suspect]
     Dosage: TAPERED DOSE
     Route: 048
     Dates: end: 20100730
  10. CALCIUM [Concomitant]
     Route: 048
     Dates: start: 20100521, end: 20100730
  11. REMICADE [Suspect]
     Route: 042
  12. PREDNISONE [Suspect]
     Dosage: DOSE STARTED AT 60 MG/DAY AND THEN TAPERED
     Route: 048
     Dates: start: 20101013
  13. CALCIUM [Concomitant]
     Indication: PROPHYLAXIS
     Route: 048
     Dates: start: 20101013

REACTIONS (4)
  - DIARRHOEA [None]
  - PYREXIA [None]
  - ABDOMINAL PAIN [None]
  - RECTAL HAEMORRHAGE [None]
